FAERS Safety Report 24400745 (Version 1)
Quarter: 2024Q4

REPORT INFORMATION
  Report Type: Spontaneous
  Country: US (occurrence: US)
  Receive Date: 20241006
  Receipt Date: 20241006
  Transmission Date: 20250115
  Serious: No
  Sender: JOHNSON AND JOHNSON
  Company Number: US-JNJFOC-20241016669

PATIENT
  Sex: Female

DRUGS (1)
  1. TYLENOL 8 HR ARTHRITIS PAIN [Suspect]
     Active Substance: ACETAMINOPHEN
     Indication: Analgesic therapy
     Dosage: 1 AT FIRST, AND THEN 2 CAPLETS EACH TIME, TWICE DAILY, SOMETIMES FIRST TIME PRODUCT USED: ONCE DEPEN
     Route: 048

REACTIONS (3)
  - Abdominal discomfort [Recovering/Resolving]
  - Product use in unapproved indication [Unknown]
  - Therapeutic response unexpected [Unknown]
